FAERS Safety Report 19153519 (Version 1)
Quarter: 2021Q2

REPORT INFORMATION
  Report Type: Spontaneous
  Country: US (occurrence: US)
  Receive Date: 20210419
  Receipt Date: 20210419
  Transmission Date: 20210717
  Serious: No
  Sender: FDA-Public Use
  Company Number: US-KVK-TECH, INC-20201100010

PATIENT
  Age: 30 Year
  Sex: Female
  Weight: 55.78 kg

DRUGS (6)
  1. PHENTERMINE HYDROCHLORIDE TABLETS, USP [Suspect]
     Active Substance: PHENTERMINE HYDROCHLORIDE
     Indication: WEIGHT DECREASED
     Dosage: TAKES HALF OF 37.5 MG OF TABLET (AROUND 18 MG), AS NECESSARY, ONCE OR TWICE A WEEK
     Route: 048
     Dates: start: 20200812, end: 20200912
  2. METFORMIN [Concomitant]
     Active Substance: METFORMIN HYDROCHLORIDE
     Indication: DIABETES MELLITUS
  3. LOMAIRA [Concomitant]
     Active Substance: PHENTERMINE HYDROCHLORIDE
  4. MELATONIN [Concomitant]
     Active Substance: MELATONIN
     Indication: SOMNOLENCE
  5. PHENTERMINE HYDROCHLORIDE TABLETS, USP [Suspect]
     Active Substance: PHENTERMINE HYDROCHLORIDE
     Indication: DECREASED APPETITE
     Dosage: TAKES HALF OF 37.5 MG OF TABLET (AROUND 18 MG), AS NECESSARY, ONCE OR TWICE A WEEK
     Route: 048
     Dates: start: 202011
  6. INSULIN [Concomitant]
     Active Substance: INSULIN NOS
     Indication: DIABETES MELLITUS

REACTIONS (15)
  - Vision blurred [Unknown]
  - Personality change [Unknown]
  - Vomiting [Unknown]
  - Blood cholesterol increased [Unknown]
  - Stress [Unknown]
  - Peripheral coldness [Unknown]
  - Dizziness [Unknown]
  - Nausea [Unknown]
  - Alcohol interaction [Unknown]
  - Wrong technique in product usage process [Unknown]
  - Abdominal pain upper [Unknown]
  - Chest pain [Unknown]
  - Feeling abnormal [Unknown]
  - Vasodilatation [Unknown]
  - Tremor [Unknown]

NARRATIVE: CASE EVENT DATE: 2020
